FAERS Safety Report 21048169 (Version 2)
Quarter: 2022Q3

REPORT INFORMATION
  Report Type: Spontaneous
  Country: US (occurrence: US)
  Receive Date: 20220706
  Receipt Date: 20220812
  Transmission Date: 20221027
  Serious: No
  Sender: FDA-Public Use
  Company Number: US-PFIZER INC-202200916795

PATIENT
  Age: 75 Year
  Sex: Female

DRUGS (2)
  1. PAXLOVID [Suspect]
     Active Substance: NIRMATRELVIR\RITONAVIR
     Indication: COVID-19 treatment
     Dosage: [PF-07321332 300 MG]/ [RITONAVIR 100 MG]; 2X/DAY
     Route: 048
     Dates: start: 20220629
  2. ALEVE [Concomitant]
     Active Substance: NAPROXEN SODIUM
     Indication: Progressive multiple sclerosis
     Dosage: UNK, 2X/DAY (ONE IN THE MORNING AND ONE AT NIGHT)
     Dates: start: 200905

REACTIONS (3)
  - Dysgeusia [Not Recovered/Not Resolved]
  - Oral disorder [Not Recovered/Not Resolved]
  - Dry mouth [Not Recovered/Not Resolved]

NARRATIVE: CASE EVENT DATE: 20220629
